FAERS Safety Report 8281545-3 (Version None)
Quarter: 2012Q2

REPORT INFORMATION
  Report Type: 
  Country: None (occurrence: None)
  Receive Date: 20120410
  Receipt Date: 20120331
  Transmission Date: 20120825
  Serious: Yes (Other)
  Sender: FDA-Public Use
  Company Number: AUR-APL-2012-01582

PATIENT
  Age: 48 Year
  Sex: Male

DRUGS (3)
  1. LAMIVUDINE (LAMIVUDINE) [Suspect]
     Indication: ANTIRETROVIRAL THERAPY
     Dosage: UNKNOWN
     Dates: start: 20060601
  2. ZIDOVUDINE [Suspect]
     Indication: ANTIRETROVIRAL THERAPY
     Dosage: UNKNOWN
     Dates: start: 20060601, end: 20071101
  3. EFAVIRENZ [Suspect]
     Indication: ANTIRETROVIRAL THERAPY
     Dosage: UNKNOWN
     Dates: start: 20060601

REACTIONS (3)
  - LIPOATROPHY [None]
  - HEPATIC ENZYME INCREASED [None]
  - HEPATITIS B [None]
